FAERS Safety Report 4647393-8 (Version None)
Quarter: 2005Q2

REPORT INFORMATION
  Report Type: 
  Country: None (occurrence: None)
  Receive Date: 20050427
  Receipt Date: 20050427
  Transmission Date: 20051028
  Serious: Yes (Hospitalization)
  Sender: FDA-Public Use
  Company Number: None

PATIENT
  Sex: Female
  Weight: 62.5 kg

DRUGS (9)
  1. DOCETAXEL [Suspect]
     Indication: METASTATIC MALIGNANT MELANOMA
     Dosage: 30 MG/M2
     Dates: start: 20050406, end: 20050420
  2. CISPLATIN [Suspect]
     Dosage: 20 MG/M2
     Dates: start: 20050406, end: 20050409
  3. ZOCOR [Concomitant]
  4. XANAX [Concomitant]
  5. PROZAC [Concomitant]
  6. IBUPROFEN [Concomitant]
  7. STOOL SOFTENER [Concomitant]
  8. OXYCONTIN [Concomitant]
  9. HYDROCODONE BITARTRATE [Concomitant]

REACTIONS (2)
  - DEHYDRATION [None]
  - PYREXIA [None]
